FAERS Safety Report 13125706 (Version 1)
Quarter: 2017Q1

REPORT INFORMATION
  Report Type: Spontaneous
  Country: BR (occurrence: BR)
  Receive Date: 20170118
  Receipt Date: 20170118
  Transmission Date: 20170428
  Serious: Yes (Death)
  Sender: FDA-Public Use
  Company Number: BR-JNJFOC-20151224437

PATIENT
  Sex: Female

DRUGS (1)
  1. SIMPONI [Suspect]
     Active Substance: GOLIMUMAB
     Indication: RHEUMATOID ARTHRITIS
     Route: 058
     Dates: start: 20130629, end: 201605

REACTIONS (4)
  - Pain in extremity [Unknown]
  - Infarction [Fatal]
  - Swelling [Unknown]
  - Arthralgia [Unknown]
